FAERS Safety Report 5711481-5 (Version None)
Quarter: 2008Q2

REPORT INFORMATION
  Report Type: 
  Country: None (occurrence: None)
  Receive Date: 20080421
  Receipt Date: 20080416
  Transmission Date: 20081010
  Serious: Yes (Hospitalization)
  Sender: FDA-Public Use
  Company Number: US-MERCK-0804USA03639

PATIENT
  Age: 74 Year
  Sex: Female

DRUGS (6)
  1. SIMVASTATIN [Suspect]
     Indication: BLOOD CHOLESTEROL
     Route: 048
     Dates: start: 20070101
  2. SYNTHROID [Concomitant]
     Route: 065
  3. PLAVIX [Concomitant]
     Route: 065
  4. NEXIUM [Concomitant]
     Route: 065
  5. DIOVAN [Concomitant]
     Route: 065
  6. KLONOPIN [Concomitant]
     Route: 065

REACTIONS (2)
  - BLOOD CHOLESTEROL INCREASED [None]
  - MYOCARDIAL INFARCTION [None]
